FAERS Safety Report 20441104 (Version 2)
Quarter: 2023Q4

REPORT INFORMATION
  Report Type: Report from Study
  Country: US (occurrence: US)
  Receive Date: 20220208
  Receipt Date: 20231117
  Transmission Date: 20240109
  Serious: Yes (Other)
  Sender: FDA-Public Use
  Company Number: US-JNJFOC-20211131851

PATIENT
  Age: 60 Year
  Sex: Female

DRUGS (3)
  1. JANSSEN COVID-19 VACCINE [Suspect]
     Active Substance: AD26.COV2.S
     Indication: Immunisation
     Dosage: DOSE 1
     Route: 065
     Dates: start: 20211004, end: 20211004
  2. STELARA [Suspect]
     Active Substance: USTEKINUMAB
     Indication: Psoriatic arthropathy
     Dosage: 45MG/0.5ML
     Route: 058
     Dates: start: 202108
  3. ZITHROMAX [Concomitant]
     Active Substance: AZITHROMYCIN DIHYDRATE
     Indication: Product used for unknown indication
     Route: 065

REACTIONS (6)
  - Vitreous detachment [Recovering/Resolving]
  - Renal impairment [Recovering/Resolving]
  - Bronchitis bacterial [Recovering/Resolving]
  - Arthritis [Recovering/Resolving]
  - Eye pain [Recovering/Resolving]
  - Headache [Recovering/Resolving]

NARRATIVE: CASE EVENT DATE: 20211005
